FAERS Safety Report 19872971 (Version 1)
Quarter: 2021Q3

REPORT INFORMATION
  Report Type: Spontaneous
  Country: US (occurrence: US)
  Receive Date: 20210923
  Receipt Date: 20210923
  Transmission Date: 20211014
  Serious: No
  Sender: FDA-Public Use
  Company Number: None

PATIENT
  Age: 69 Year
  Sex: Female
  Weight: 68.4 kg

DRUGS (22)
  1. LEVOFLOXACIN 500MG [Concomitant]
     Active Substance: LEVOFLOXACIN
  2. AMLODIPINE [Concomitant]
     Active Substance: AMLODIPINE BESYLATE
  3. ONDANSETRON 4MG [Concomitant]
     Active Substance: ONDANSETRON
  4. MAGNESIUM OXIDE 400MG [Concomitant]
     Active Substance: MAGNESIUM OXIDE
  5. LOSARTAN?HCTZ 50?12.5MG [Concomitant]
     Active Substance: HYDROCHLOROTHIAZIDE\LOSARTAN POTASSIUM
  6. AMOXICILLIN 500MG [Concomitant]
     Active Substance: AMOXICILLIN
  7. PREMARIN 0.625MG/GM [Concomitant]
  8. FLAGYL 250MG [Concomitant]
  9. VITAMIN D 400IU [Concomitant]
  10. DOCUSATE 100MG/10ML [Concomitant]
  11. PROTONIX [Concomitant]
     Active Substance: PANTOPRAZOLE SODIUM
  12. PROCHLORPERAZINE 10MG [Concomitant]
  13. ESTRACE 0.1MG/GM [Concomitant]
  14. CAPECITABINE. [Suspect]
     Active Substance: CAPECITABINE
     Indication: GASTRIC CANCER
     Dosage: ?          OTHER FREQUENCY:AM,2GMPM 14/21DAYS;?
     Route: 048
     Dates: start: 20200520, end: 20210907
  15. NORVASC [Concomitant]
     Active Substance: AMLODIPINE BESYLATE
  16. GABAPENTIN 100MG [Concomitant]
     Active Substance: GABAPENTIN
  17. LACTULOSE 20GM/30ML [Concomitant]
  18. FERROUS SULFATE 325MG [Concomitant]
     Active Substance: FERROUS SULFATE
  19. VITAMIN C 500MG [Concomitant]
  20. ALPRAZOLAM 0.25MG [Concomitant]
     Active Substance: ALPRAZOLAM
  21. FLUTICASONE 50MCG/ACT [Concomitant]
  22. LOPERAMIDE 2MG [Concomitant]
     Active Substance: LOPERAMIDE

REACTIONS (1)
  - Abdominal pain upper [None]

NARRATIVE: CASE EVENT DATE: 20210907
